FAERS Safety Report 8355464-8 (Version None)
Quarter: 2012Q2

REPORT INFORMATION
  Report Type: 
  Country: None (occurrence: None)
  Receive Date: 20120512
  Receipt Date: 20120501
  Transmission Date: 20120825
  Serious: Yes (Hospitalization)
  Sender: FDA-Public Use
  Company Number: US-ELI_LILLY_AND_COMPANY-US201201003786

PATIENT
  Sex: Female
  Weight: 78.5 kg

DRUGS (9)
  1. FORTEO [Suspect]
     Indication: OSTEOPOROSIS
     Dosage: 20 UG, QD
     Dates: start: 20110101
  2. PHENERGAN [Concomitant]
     Dosage: UNK UNK, PRN
     Route: 048
  3. AMITRIPTYLENE [Concomitant]
     Dosage: UNK G, UNK
     Route: 048
  4. COCAINE [Concomitant]
  5. CRESTON [Concomitant]
     Dosage: UNK UNK, QD
     Route: 048
  6. JANUMET [Concomitant]
     Dosage: UNK UNK, BID
     Route: 048
  7. NORCO [Concomitant]
     Route: 048
  8. FORTEO [Suspect]
     Dosage: 20 UG, QD
  9. ESTROGENS CONJUGATED [Concomitant]
     Dosage: UNK UNK, QD
     Route: 048

REACTIONS (10)
  - DYSPHONIA [None]
  - MALAISE [None]
  - PAIN [None]
  - CHEST PAIN [None]
  - DRUG ABUSE [None]
  - MEMORY IMPAIRMENT [None]
  - THINKING ABNORMAL [None]
  - GAIT DISTURBANCE [None]
  - TENDONITIS [None]
  - DEPRESSION [None]
